FAERS Safety Report 17881079 (Version 1)
Quarter: 2020Q2

REPORT INFORMATION
  Report Type: Spontaneous
  Country: US (occurrence: US)
  Receive Date: 20200610
  Receipt Date: 20200610
  Transmission Date: 20200714
  Serious: Yes (Other)
  Sender: FDA-Public Use
  Company Number: US-NAPPMUNDI-USA-2020-0154153

PATIENT
  Age: 60 Year
  Sex: Male

DRUGS (1)
  1. OXYCONTIN [Suspect]
     Active Substance: OXYCODONE HYDROCHLORIDE
     Indication: PAIN
     Route: 048

REACTIONS (5)
  - Drug dependence [Unknown]
  - Hip arthroplasty [Unknown]
  - Cervical vertebral fracture [Unknown]
  - Elbow operation [Unknown]
  - Unevaluable event [Unknown]
